FAERS Safety Report 4546353-5 (Version None)
Quarter: 2005Q1

REPORT INFORMATION
  Report Type: 
  Country: None (occurrence: None)
  Receive Date: 20050103
  Receipt Date: 20041220
  Transmission Date: 20050727
  Serious: Yes (Hospitalization)
  Sender: FDA-Public Use
  Company Number: RENA-11236

PATIENT
  Age: 71 Year
  Sex: Female
  Weight: 73 kg

DRUGS (11)
  1. RENAGEL [Suspect]
     Indication: HYPERPHOSPHATAEMIA
     Dosage: 1.6 G DAILY PO
     Route: 048
     Dates: end: 20040716
  2. CIPRALAN [Suspect]
     Indication: HYPERPHOSPHATAEMIA
     Dosage: 65 MG BID PO
     Route: 048
     Dates: start: 20040702, end: 20040714
  3. MOPRAL [Concomitant]
  4. LASILIX [Concomitant]
  5. DUPHALAC [Concomitant]
  6. NOOTROPYL [Concomitant]
  7. CORDARONE [Concomitant]
  8. LEVOTHYROX [Concomitant]
  9. MUCOMYST [Concomitant]
  10. KARDEGIC [Concomitant]
  11. KAYEXALATE [Concomitant]

REACTIONS (4)
  - ACUTE PULMONARY OEDEMA [None]
  - ACUTE RESPIRATORY FAILURE [None]
  - CARDIAC FAILURE [None]
  - DYSPNOEA [None]
